FAERS Safety Report 26102003 (Version 2)
Quarter: 2025Q4

REPORT INFORMATION
  Report Type: Spontaneous
  Country: JP (occurrence: JP)
  Receive Date: 20251128
  Receipt Date: 20251208
  Transmission Date: 20260117
  Serious: Yes (Hospitalization, Other)
  Sender: BRACCO
  Company Number: JP-BRACCO-2025JP08156

PATIENT
  Age: 55 Year
  Sex: Female
  Weight: 51 kg

DRUGS (1)
  1. IOMERON [Suspect]
     Active Substance: IOMEPROL
     Indication: Computerised tomogram
     Dosage: 91 ML, SINGLE
     Dates: start: 20250924, end: 20250924

REACTIONS (2)
  - Contraindicated product administered [Recovering/Resolving]
  - Contrast media allergy [Recovering/Resolving]

NARRATIVE: CASE EVENT DATE: 20250924
